FAERS Safety Report 7770768-5 (Version None)
Quarter: 2011Q3

REPORT INFORMATION
  Report Type: 
  Country: None (occurrence: None)
  Receive Date: 20110922
  Receipt Date: 20110207
  Transmission Date: 20111222
  Serious: No
  Sender: FDA-Public Use
  Company Number: US-ASTRAZENECA-2011SE06969

PATIENT
  Age: 27 Year
  Sex: Male

DRUGS (8)
  1. SEROQUEL XR [Suspect]
     Indication: DEPRESSION
     Route: 048
     Dates: start: 20101101
  2. SEROQUEL XR [Suspect]
     Route: 048
  3. SEROQUEL XR [Suspect]
     Route: 048
  4. STRATTERA [Concomitant]
     Indication: ATTENTION DEFICIT/HYPERACTIVITY DISORDER
  5. SEROQUEL XR [Suspect]
     Indication: BIPOLAR DISORDER
     Route: 048
     Dates: start: 20101101
  6. SEROQUEL XR [Suspect]
     Route: 048
  7. SUBOXONE [Concomitant]
     Indication: DRUG DEPENDENCE
  8. SEROQUEL XR [Suspect]
     Route: 048

REACTIONS (8)
  - NAUSEA [None]
  - APHAGIA [None]
  - VOMITING [None]
  - INCORRECT DOSE ADMINISTERED [None]
  - APATHY [None]
  - MALAISE [None]
  - WRONG TECHNIQUE IN DRUG USAGE PROCESS [None]
  - DRUG DOSE OMISSION [None]
